FAERS Safety Report 5143104-0 (Version None)
Quarter: 2006Q4

REPORT INFORMATION
  Report Type: 
  Country: None (occurrence: None)
  Receive Date: 20061103
  Receipt Date: 20060926
  Transmission Date: 20070319
  Serious: Yes (Hospitalization)
  Sender: FDA-Public Use
  Company Number: CHWYE049127SEP06

PATIENT
  Age: 15 Year
  Sex: Male
  Weight: 46.8 kg

DRUGS (2)
  1. ENBREL [Suspect]
     Indication: JUVENILE ARTHRITIS
     Route: 058
     Dates: start: 20060512, end: 20060807
  2. ARAVA [Suspect]
     Indication: JUVENILE ARTHRITIS
     Route: 048
     Dates: start: 20041011, end: 20060807

REACTIONS (3)
  - FACIAL PARESIS [None]
  - NEUROBORRELIOSIS [None]
  - PLEOCYTOSIS [None]
